FAERS Safety Report 18227233 (Version 1)
Quarter: 2020Q3

REPORT INFORMATION
  Report Type: Spontaneous
  Country: US (occurrence: US)
  Receive Date: 20200903
  Receipt Date: 20200903
  Transmission Date: 20201103
  Serious: No
  Sender: FDA-Public Use
  Company Number: US-JNJFOC-20200833278

PATIENT
  Age: 30 Year
  Sex: Female
  Weight: 59.02 kg

DRUGS (2)
  1. WOMENS ROGAINE [Suspect]
     Active Substance: MINOXIDIL
     Indication: ALOPECIA
     Dosage: DOSE: 5ML
     Route: 061
     Dates: start: 20180801
  2. WOMENS ROGAINE [Suspect]
     Active Substance: MINOXIDIL
     Dosage: FREQUENCY: ONCE A DAY  (SWITCHED TO APPLYING ONCE DAILY DUE TO SIDE EFFECTS).
     Route: 061
     Dates: end: 20200814

REACTIONS (3)
  - Adverse event [Unknown]
  - Exposure during pregnancy [Unknown]
  - Overdose [Unknown]

NARRATIVE: CASE EVENT DATE: 20180801
